FAERS Safety Report 7169667-1 (Version None)
Quarter: 2010Q4

REPORT INFORMATION
  Report Type: 
  Country: None (occurrence: None)
  Receive Date: 20101217
  Receipt Date: 20101209
  Transmission Date: 20110411
  Serious: Yes (Hospitalization)
  Sender: FDA-Public Use
  Company Number: ES-PFIZER INC-2010167773

PATIENT
  Age: 64 Year
  Sex: Male

DRUGS (12)
  1. NEURONTIN [Suspect]
     Dosage: 300 MG, UNK
     Route: 048
     Dates: start: 20070101, end: 20100821
  2. ENALAPRIL MALEATE [Suspect]
     Dosage: UNK
     Route: 048
     Dates: start: 20070101, end: 20100821
  3. DIGOXIN [Concomitant]
     Route: 048
  4. ADIRO [Concomitant]
     Dosage: 100 MG, UNK
     Route: 048
  5. NOVONORM [Concomitant]
     Dosage: 1 MG, UNK
     Route: 048
  6. PLUSVENT [Concomitant]
     Dosage: 25/125 UG, UNK
     Route: 055
     Dates: end: 20100801
  7. SEDOTIME [Concomitant]
     Dosage: 15 MG, UNK
     Route: 048
     Dates: end: 20100801
  8. SEGURIL [Concomitant]
     Dosage: 40 MG, UNK
     Route: 048
  9. SINTROM [Concomitant]
     Route: 048
  10. SPIRIVA [Concomitant]
     Dosage: 18 UG, UNK
     Route: 055
     Dates: end: 20100801
  11. FERRO-GRADUMET [Concomitant]
  12. NITROGLICERINA [Concomitant]

REACTIONS (2)
  - HYPONATRAEMIA [None]
  - INAPPROPRIATE ANTIDIURETIC HORMONE SECRETION [None]
